FAERS Safety Report 5313073-9 (Version None)
Quarter: 2007Q2

REPORT INFORMATION
  Report Type: 
  Country: None (occurrence: None)
  Receive Date: 20070424
  Receipt Date: 20070413
  Transmission Date: 20071010
  Serious: Yes (Other)
  Sender: FDA-Public Use
  Company Number: 36023

PATIENT

DRUGS (1)
  1. ACETYLCYSTEINE SOLUTION SUP 10%/10ML - BEDFORD LABS, INC. [Suspect]

REACTIONS (1)
  - MEDICATION ERROR [None]
